FAERS Safety Report 4896357-8 (Version None)
Quarter: 2006Q1

REPORT INFORMATION
  Report Type: 
  Country: None (occurrence: None)
  Receive Date: 20060131
  Receipt Date: 20060120
  Transmission Date: 20060701
  Serious: Yes (Hospitalization)
  Sender: FDA-Public Use
  Company Number: PHHO2006JP01459

PATIENT
  Age: 68 Year
  Sex: Female

DRUGS (4)
  1. DIOVAN [Suspect]
     Indication: HYPERTENSION
     Dosage: 20 MG, QD
     Route: 048
     Dates: start: 20031107, end: 20040810
  2. PANALDINE [Concomitant]
  3. BUFFERIN [Concomitant]
  4. LENDORMIN [Concomitant]

REACTIONS (2)
  - HYPOAESTHESIA [None]
  - THROMBOTIC STROKE [None]
